FAERS Safety Report 7060879-4 (Version None)
Quarter: 2010Q4

REPORT INFORMATION
  Report Type: 
  Country: None (occurrence: None)
  Receive Date: 20101025
  Receipt Date: 20101015
  Transmission Date: 20110411
  Serious: Yes (Congenital Anomaly)
  Sender: FDA-Public Use
  Company Number: GB-MERCK-1010GBR00065B1

PATIENT

DRUGS (3)
  1. ISENTRESS [Suspect]
     Route: 064
  2. ETRAVIRINE [Concomitant]
     Route: 065
  3. EMTRICITABINE AND TENOFOVIR DISOPROXIL FUMARATE [Concomitant]
     Route: 065

REACTIONS (1)
  - EXOMPHALOS [None]
